FAERS Safety Report 8030087-9 (Version None)
Quarter: 2012Q1

REPORT INFORMATION
  Report Type: 
  Country: None (occurrence: None)
  Receive Date: 20120109
  Receipt Date: 20120102
  Transmission Date: 20120608
  Serious: Yes (Other)
  Sender: FDA-Public Use
  Company Number: GB-COVIDIEN/TYCO HEALTHCARE/MALLINCKRODT-T201200011

PATIENT
  Age: 87 Year
  Sex: Male

DRUGS (4)
  1. TRAMADOL HCL [Suspect]
  2. CO-BENELDOPA [Concomitant]
     Indication: PARKINSON'S DISEASE
     Dosage: 125 MG, TID
  3. ENTACAPONE [Concomitant]
     Indication: PARKINSON'S DISEASE
     Dosage: 200 MG, TID
  4. CODEINE [Concomitant]
     Indication: PAIN MANAGEMENT

REACTIONS (1)
  - MOTOR DYSFUNCTION [None]
